FAERS Safety Report 13479556 (Version 1)
Quarter: 2020Q3

REPORT INFORMATION
  Report Type: Report from Study
  Country: PL (occurrence: PL)
  Receive Date: 20170424
  Receipt Date: 20170424
  Transmission Date: 20201104
  Serious: Yes (Hospitalization, Disabling)
  Sender: FDA-Public Use
  Company Number: PL-BAXALTA-2017BLT003163

PATIENT
  Age: 42 Year
  Sex: Male
  Weight: 99.5 kg

DRUGS (14)
  1. HYDROXYZINE [Concomitant]
     Active Substance: HYDROXYZINE HYDROCHLORIDE
     Indication: INSOMNIA
  2. FLORACTIN [Concomitant]
     Indication: ANTIBIOTIC PROPHYLAXIS
  3. PRAZOL                             /00661201/ [Concomitant]
     Indication: GASTRITIS PROPHYLAXIS
  4. PERFALGAN [Concomitant]
     Active Substance: ACETAMINOPHEN
     Indication: ANALGESIC THERAPY
  5. ESTAZOLAM. [Concomitant]
     Active Substance: ESTAZOLAM
     Indication: INSOMNIA
  6. METRONIDAZOLE. [Concomitant]
     Active Substance: METRONIDAZOLE
     Indication: INFECTION PROPHYLAXIS
  7. EMICIZUMAB. [Suspect]
     Active Substance: EMICIZUMAB
     Indication: FACTOR VIII DEFICIENCY
     Dosage: LAST DOSE ADMINISTERED: 1 ML, 1X A WEEK
     Route: 058
     Dates: start: 20160505
  8. PARACETAMOL [Concomitant]
     Active Substance: ACETAMINOPHEN
     Indication: ANALGESIC THERAPY
  9. FEIBA [Suspect]
     Active Substance: ANTI-INHIBITOR COAGULANT COMPLEX
     Indication: HAEMARTHROSIS
     Dosage: 10000 UNIT NOT REPORTED, 1X A DAY
     Route: 042
     Dates: start: 20160926, end: 20160926
  10. FEIBA [Suspect]
     Active Substance: ANTI-INHIBITOR COAGULANT COMPLEX
     Indication: MUSCLE HAEMORRHAGE
     Dosage: 10000 UNIT NOT REPORTED, 1X A DAY
     Route: 042
     Dates: start: 20160927, end: 20160927
  11. DORMICUM                           /00634101/ [Concomitant]
     Active Substance: MIDAZOLAM HYDROCHLORIDE
     Indication: INSOMNIA
  12. POLFILIN [Concomitant]
     Active Substance: PENTOXIFYLLINE
     Indication: PROMOTION OF PERIPHERAL CIRCULATION
  13. TRAMAL [Concomitant]
     Active Substance: TRAMADOL
     Indication: ANALGESIC THERAPY
  14. AUGMENTIN [Concomitant]
     Active Substance: AMOXICILLIN\CLAVULANATE POTASSIUM
     Indication: INFECTION PROPHYLAXIS

REACTIONS (2)
  - Thrombophlebitis superficial [Recovering/Resolving]
  - Skin necrosis [Recovering/Resolving]

NARRATIVE: CASE EVENT DATE: 20160928
